FAERS Safety Report 8389406-6 (Version None)
Quarter: 2012Q2

REPORT INFORMATION
  Report Type: 
  Country: None (occurrence: None)
  Receive Date: 20120528
  Receipt Date: 20120516
  Transmission Date: 20120825
  Serious: Yes (Other)
  Sender: FDA-Public Use
  Company Number: US-SHIRE-ALL1-2012-02607

PATIENT
  Sex: Male
  Weight: 85.261 kg

DRUGS (13)
  1. PRILOSEC [Concomitant]
     Indication: GASTROOESOPHAGEAL REFLUX DISEASE
     Dosage: 40 MG, 1X/DAY:QD
     Route: 048
     Dates: start: 20000101
  2. PENTASA [Suspect]
     Indication: COLITIS ULCERATIVE
     Dosage: 2000 MG; 2X/DAY:BID (FOUR 500 MG CAPSULES)
     Route: 048
     Dates: start: 20120407
  3. BUTALBITAL [Concomitant]
     Indication: MIGRAINE
     Dosage: UNKNOWN MG TABLET AS NEEDED
     Route: 048
     Dates: start: 20070101
  4. BENZONATATE [Concomitant]
     Indication: INCREASED BRONCHIAL SECRETION
     Dosage: 200 MG, 2X/DAY:BID
     Route: 048
     Dates: start: 20040101
  5. METOPROLOL TARTRATE [Concomitant]
     Indication: PRODUCT USED FOR UNKNOWN INDICATION
     Dosage: 50 MG, 1X/DAY:QD
     Route: 048
     Dates: start: 20040101
  6. PRAVASTATIN SODIUM [Concomitant]
     Indication: BLOOD CHOLESTEROL INCREASED
     Dosage: 20 MG, 1X/DAY:QD
     Route: 048
     Dates: start: 20040101
  7. LIALDA [Suspect]
     Indication: DIVERTICULITIS
     Dosage: 4.8 G; 1X/DAY:QD (FOUR 1.2 G TABLETS IN THE AM)
     Route: 048
     Dates: start: 20120301, end: 20120406
  8. ENALAPRIL MALEATE [Concomitant]
     Indication: PRODUCT USED FOR UNKNOWN INDICATION
     Dosage: 10 MG, 1X/DAY:QD
     Route: 048
     Dates: start: 20050101
  9. LIALDA [Suspect]
     Indication: COLITIS ULCERATIVE
     Dosage: 2.4 G; 1X/DAY:QD (TWO 1.2 G TABLETS IN THE PM)
     Route: 048
     Dates: start: 20120301, end: 20120406
  10. UNSPECIFIED NEBULIZER [Concomitant]
     Indication: PRODUCT USED FOR UNKNOWN INDICATION
     Dosage: UNKNOWN DOSE SOLUTION INHALED EVERY 4 HOURS
     Route: 055
  11. CLONIDINE [Concomitant]
     Indication: BLOOD PRESSURE INCREASED
     Dosage: TWO 0.1 MG TABLETS 1X/DAY:QD
     Route: 048
     Dates: start: 20040101
  12. COMBIVENT [Concomitant]
     Indication: PRODUCT USED FOR UNKNOWN INDICATION
     Dosage: 2 PUFFS, 2X/DAY:BID
     Route: 055
  13. FLOVENT [Concomitant]
     Indication: PRODUCT USED FOR UNKNOWN INDICATION
     Dosage: 220 ?G, 2 PUFFS 2X/DAY:BID
     Route: 055

REACTIONS (1)
  - RENAL IMPAIRMENT [None]
